FAERS Safety Report 25913785 (Version 1)
Quarter: 2025Q4

REPORT INFORMATION
  Report Type: Spontaneous
  Country: EU (occurrence: EU)
  Receive Date: 20251013
  Receipt Date: 20251013
  Transmission Date: 20260117
  Serious: Yes (Other)
  Sender: MERCK SHARP & DOHME LLC
  Company Number: EU-009507513-2336251

PATIENT
  Age: 55 Year
  Sex: Female

DRUGS (1)
  1. PEMBROLIZUMAB [Suspect]
     Active Substance: PEMBROLIZUMAB
     Indication: Triple negative breast cancer
     Dosage: 1ST CYCLE
     Route: 065
     Dates: start: 20250515

REACTIONS (3)
  - Sepsis [Unknown]
  - Colitis [Unknown]
  - Arthritis [Unknown]

NARRATIVE: CASE EVENT DATE: 20250603
